FAERS Safety Report 9683949 (Version 1)
Quarter: 2013Q4

REPORT INFORMATION
  Report Type: Spontaneous
  Country: US (occurrence: US)
  Receive Date: 20131112
  Receipt Date: 20131112
  Transmission Date: 20140711
  Serious: Yes (Other)
  Sender: FDA-Public Use
  Company Number: US-PFIZER INC-2013321050

PATIENT
  Age: 66 Year
  Sex: Female
  Weight: 64.4 kg

DRUGS (8)
  1. LYRICA [Suspect]
     Indication: FIBROMYALGIA
     Dosage: 200 MG, 2X/DAY
  2. LYRICA [Suspect]
     Indication: PAIN IN EXTREMITY
     Dosage: 300 MG, 2X/DAY
  3. PRAVASTATIN [Concomitant]
     Indication: BLOOD CHOLESTEROL ABNORMAL
     Dosage: 20 MG, 1X/DAY
  4. TRAZODONE [Concomitant]
     Indication: DEPRESSION
     Dosage: 300 MG, 1X/DAY
  5. TRAZODONE [Concomitant]
     Indication: SLEEP DISORDER
  6. XANAX [Concomitant]
     Dosage: 1 MG, AS NEEDED
  7. PRISTIQ [Concomitant]
     Indication: DEPRESSION
     Dosage: 50 MG, 1X/DAY
  8. CALCIUM [Concomitant]
     Dosage: UNK

REACTIONS (6)
  - Staphylococcal infection [Recovered/Resolved]
  - Precancerous skin lesion [Unknown]
  - Exophthalmos [Unknown]
  - Eye pruritus [Unknown]
  - Skin swelling [Unknown]
  - Drug ineffective [Unknown]
